FAERS Safety Report 7070105-8 (Version None)
Quarter: 2010Q4

REPORT INFORMATION
  Report Type: 
  Country: None (occurrence: None)
  Receive Date: 20101028
  Receipt Date: 20100903
  Transmission Date: 20110411
  Serious: No
  Sender: FDA-Public Use
  Company Number: US-WYE-H17492710

PATIENT
  Sex: Female

DRUGS (7)
  1. EFFEXOR [Suspect]
     Indication: HOT FLUSH
     Dosage: UNKNOWN
     Dates: start: 20071201
  2. COLECALCIFEROL [Concomitant]
  3. LETROZOLE [Concomitant]
     Indication: ADJUVANT THERAPY
     Dosage: UNKNOWN
  4. FISH OIL [Concomitant]
  5. ANASTROZOLE [Concomitant]
     Indication: ADJUVANT THERAPY
     Dosage: UNKNOWN
  6. PROMETRIUM [Concomitant]
  7. CALCIUM [Concomitant]

REACTIONS (1)
  - DRUG INEFFECTIVE [None]
